FAERS Safety Report 6055045-5 (Version None)
Quarter: 2009Q1

REPORT INFORMATION
  Report Type: 
  Country: None (occurrence: None)
  Receive Date: 20090128
  Receipt Date: 20090121
  Transmission Date: 20090719
  Serious: Yes (Death, Other)
  Sender: FDA-Public Use
  Company Number: ES-CELGENEUS-144-CCAZA-09011061

PATIENT
  Age: 26 Year
  Sex: Female
  Weight: 52 kg

DRUGS (2)
  1. AZACITIDINE [Suspect]
     Route: 051
     Dates: start: 20081006, end: 20081015
  2. AZACITIDINE [Suspect]
     Route: 051
     Dates: start: 20081124, end: 20081202

REACTIONS (1)
  - INFECTION [None]
